FAERS Safety Report 15551124 (Version 1)
Quarter: 2018Q4

REPORT INFORMATION
  Report Type: Spontaneous
  Country: US (occurrence: US)
  Receive Date: 20181022
  Receipt Date: 20181022
  Transmission Date: 20190205
  Serious: No
  Sender: FDA-Public Use
  Company Number: None

PATIENT
  Sex: Female

DRUGS (6)
  1. LOVOTHRYOXIN [Concomitant]
  2. NORETHINDRON [Concomitant]
  3. OCALIVA [Suspect]
     Active Substance: OBETICHOLIC ACID
     Indication: HEPATIC CIRRHOSIS
     Route: 048
     Dates: start: 20180806
  4. ESTRADIOL. [Concomitant]
     Active Substance: ESTRADIOL
  5. OTEZLA [Concomitant]
     Active Substance: APREMILAST
  6. URSODIOL. [Concomitant]
     Active Substance: URSODIOL

REACTIONS (2)
  - Pruritus [None]
  - Dermatitis contact [None]
